FAERS Safety Report 19881874 (Version 3)
Quarter: 2022Q1

REPORT INFORMATION
  Report Type: Other
  Country: DE (occurrence: None)
  Receive Date: 20210925
  Receipt Date: 20220328
  Transmission Date: 20220424
  Serious: No
  Sender: FDA-Public Use
  Company Number: DE-ROCHE-2915859

PATIENT
  Age: 28 Year
  Sex: Female
  Weight: 67 kg

DRUGS (18)
  1. OCRELIZUMAB [Suspect]
     Active Substance: OCRELIZUMAB
     Indication: Relapsing multiple sclerosis
     Route: 042
     Dates: start: 20190920
  2. OCRELIZUMAB [Suspect]
     Active Substance: OCRELIZUMAB
     Route: 042
     Dates: start: 20190301, end: 20190319
  3. PFIZER-BIONTECH COVID-19 VACCINE [Concomitant]
     Active Substance: TOZINAMERAN
     Indication: COVID-19 prophylaxis
     Route: 030
     Dates: start: 20210702, end: 20210702
  4. TAFLUPROST [Concomitant]
     Active Substance: TAFLUPROST
     Indication: Glaucoma
     Route: 047
  5. METHYLPREDNISOLONE [Concomitant]
     Active Substance: METHYLPREDNISOLONE
     Indication: Premedication
     Route: 042
     Dates: start: 20190920
  6. METHYLPREDNISOLONE [Concomitant]
     Active Substance: METHYLPREDNISOLONE
     Route: 042
     Dates: start: 20190220, end: 20190220
  7. METHYLPREDNISOLONE [Concomitant]
     Active Substance: METHYLPREDNISOLONE
     Route: 042
     Dates: start: 20190301, end: 20190301
  8. METHYLPREDNISOLONE [Concomitant]
     Active Substance: METHYLPREDNISOLONE
     Route: 042
     Dates: start: 20190319, end: 20190319
  9. ACETAMINOPHEN [Concomitant]
     Active Substance: ACETAMINOPHEN
     Indication: Prophylaxis
     Route: 048
     Dates: start: 20190920
  10. ACETAMINOPHEN [Concomitant]
     Active Substance: ACETAMINOPHEN
     Route: 042
     Dates: start: 20190319, end: 20190319
  11. ACETAMINOPHEN [Concomitant]
     Active Substance: ACETAMINOPHEN
     Route: 042
     Dates: start: 20190301, end: 20190301
  12. ACETAMINOPHEN [Concomitant]
     Active Substance: ACETAMINOPHEN
     Route: 048
     Dates: start: 20190220, end: 20190220
  13. PFIZER-BIONTECH COVID-19 VACCINE [Concomitant]
     Active Substance: TOZINAMERAN
     Indication: COVID-19 prophylaxis
     Route: 030
     Dates: start: 20210702, end: 20210702
  14. DIMENHYDRINATE [Concomitant]
     Active Substance: DIMENHYDRINATE
     Indication: Prophylaxis
     Route: 042
     Dates: start: 20190319, end: 20190319
  15. DIMENHYDRINATE [Concomitant]
     Active Substance: DIMENHYDRINATE
     Indication: Premedication
     Route: 042
     Dates: start: 20190920
  16. DIMENHYDRINATE [Concomitant]
     Active Substance: DIMENHYDRINATE
     Route: 042
     Dates: start: 20190220, end: 20190220
  17. DIMENHYDRINATE [Concomitant]
     Active Substance: DIMENHYDRINATE
     Route: 042
     Dates: start: 20190301, end: 20190301
  18. MIRTAZAPINE [Concomitant]
     Active Substance: MIRTAZAPINE
     Indication: Depression
     Route: 048
     Dates: start: 201906

REACTIONS (1)
  - COVID-19 [Recovered/Resolved]

NARRATIVE: CASE EVENT DATE: 20201222
